FAERS Safety Report 25762357 (Version 1)
Quarter: 2025Q3

REPORT INFORMATION
  Report Type: Spontaneous
  Country: US (occurrence: US)
  Receive Date: 20250904
  Receipt Date: 20250904
  Transmission Date: 20251020
  Serious: Yes (Other)
  Sender: BRISTOL-MYERS SQUIBB COMPANY
  Company Number: US-BRISTOL-MYERS SQUIBB COMPANY-2025-122384

PATIENT
  Age: 64 Year
  Sex: Male
  Weight: 74.39 kg

DRUGS (1)
  1. LENALIDOMIDE [Suspect]
     Active Substance: LENALIDOMIDE
     Indication: Plasma cell myeloma
     Dosage: FREQ: ONCE A DAY FOR 3 WEEKS ON AND 1 WK OFF
     Route: 048

REACTIONS (4)
  - Fall [Unknown]
  - Plasma cell myeloma [Unknown]
  - Treatment noncompliance [Unknown]
  - Shoulder fracture [Unknown]
